FAERS Safety Report 8028659-0 (Version None)
Quarter: 2012Q1

REPORT INFORMATION
  Report Type: 
  Country: None (occurrence: None)
  Receive Date: 20120106
  Receipt Date: 20111228
  Transmission Date: 20120608
  Serious: Yes (Death, Hospitalization)
  Sender: FDA-Public Use
  Company Number: US-ACTELION-A-US2008-20601

PATIENT

DRUGS (1)
  1. TRACLEER [Suspect]
     Indication: PULMONARY ARTERIAL HYPERTENSION
     Dosage: UNK MG, UNK
     Route: 048
     Dates: start: 20061001, end: 20111216

REACTIONS (9)
  - NEOPLASM MALIGNANT [None]
  - ASTHENIA [None]
  - MALAISE [None]
  - SPINAL COLUMN STENOSIS [None]
  - PNEUMONIA [None]
  - RECTAL HAEMORRHAGE [None]
  - PAIN [None]
  - FATIGUE [None]
  - TRANSFUSION [None]
